FAERS Safety Report 20533679 (Version 1)
Quarter: 2022Q1

REPORT INFORMATION
  Report Type: Spontaneous
  Country: CA (occurrence: CA)
  Receive Date: 20220301
  Receipt Date: 20220301
  Transmission Date: 20220423
  Serious: Yes (Death, Other)
  Sender: FDA-Public Use
  Company Number: CA-NAPPMUNDI-GBR-2022-0095225

PATIENT
  Age: 60 Year
  Sex: Female

DRUGS (14)
  1. DILAUDID [Suspect]
     Active Substance: HYDROMORPHONE HYDROCHLORIDE
     Indication: Bone pain
     Dosage: 2 MG, 3 EVERY 1 DAY
     Route: 065
  2. DILAUDID [Suspect]
     Active Substance: HYDROMORPHONE HYDROCHLORIDE
     Dosage: 6 MG, UNK
     Route: 065
  3. DILAUDID [Suspect]
     Active Substance: HYDROMORPHONE HYDROCHLORIDE
     Dosage: UNK
     Route: 030
  4. SANDOSTATIN LAR DEPOT [Suspect]
     Active Substance: OCTREOTIDE ACETATE
     Indication: Carcinoid tumour
     Dosage: 30 MG, 1 EVERY 4 WEEKS
     Route: 030
  5. SANDOSTATIN LAR DEPOT [Suspect]
     Active Substance: OCTREOTIDE ACETATE
     Dosage: 30 MG,1 EVERY 4 WEEKS
     Route: 030
  6. COUMADIN [Concomitant]
     Active Substance: WARFARIN SODIUM
     Indication: Product used for unknown indication
     Dosage: UNK
     Route: 065
  7. FRAGMIN [Concomitant]
     Active Substance: DALTEPARIN SODIUM
     Indication: Product used for unknown indication
     Dosage: UNK
     Route: 065
  8. HEPARIN [Concomitant]
     Active Substance: HEPARIN SODIUM
     Indication: Product used for unknown indication
     Dosage: UNK
     Route: 065
  9. ROSUVASTATIN [Concomitant]
     Active Substance: ROSUVASTATIN
     Indication: Product used for unknown indication
     Dosage: UNK
     Route: 065
  10. WARFARIN [Concomitant]
     Active Substance: WARFARIN
     Indication: Product used for unknown indication
     Dosage: 14 MG, UNK
     Route: 065
  11. WARFARIN [Concomitant]
     Active Substance: WARFARIN
     Dosage: UNK
     Route: 065
  12. WARFARIN [Concomitant]
     Active Substance: WARFARIN
     Dosage: 7 MG, DAILY
     Route: 065
  13. WARFARIN [Concomitant]
     Active Substance: WARFARIN
     Dosage: UNK
     Route: 065
  14. WARFARIN [Concomitant]
     Active Substance: WARFARIN
     Dosage: 7 MG, DAILY
     Route: 065

REACTIONS (45)
  - Abdominal distension [Fatal]
  - Abdominal hernia [Fatal]
  - Abdominal mass [Fatal]
  - Arthralgia [Fatal]
  - Back pain [Fatal]
  - Blood pressure systolic increased [Fatal]
  - Body temperature increased [Fatal]
  - Bone pain [Fatal]
  - Coccydynia [Fatal]
  - Cold sweat [Fatal]
  - Colon cancer [Fatal]
  - Constipation [Fatal]
  - Death [Fatal]
  - Decreased appetite [Fatal]
  - Diarrhoea [Fatal]
  - Discomfort [Fatal]
  - Dizziness [Fatal]
  - Fatigue [Fatal]
  - Feeling abnormal [Fatal]
  - Flushing [Fatal]
  - Groin pain [Fatal]
  - Hepatic function abnormal [Fatal]
  - Hot flush [Fatal]
  - Hypercholesterolaemia [Fatal]
  - Hyperhidrosis [Fatal]
  - Hypertension [Fatal]
  - Insomnia [Fatal]
  - International normalised ratio increased [Fatal]
  - Malaise [Fatal]
  - Metastases to bone [Fatal]
  - Metastases to liver [Fatal]
  - Metastases to lymph nodes [Fatal]
  - Metastases to pancreas [Fatal]
  - Metastases to pelvis [Fatal]
  - Musculoskeletal discomfort [Fatal]
  - Musculoskeletal stiffness [Fatal]
  - Nasopharyngitis [Fatal]
  - Nausea [Fatal]
  - Pain [Fatal]
  - Pain in extremity [Fatal]
  - Rash [Fatal]
  - Sinusitis [Fatal]
  - Stress [Fatal]
  - Vertigo [Fatal]
  - Weight decreased [Fatal]
